FAERS Safety Report 14989008 (Version 1)
Quarter: 2018Q2

REPORT INFORMATION
  Report Type: Spontaneous
  Country: SE (occurrence: SE)
  Receive Date: 20180608
  Receipt Date: 20180608
  Transmission Date: 20180711
  Serious: Yes (Other)
  Sender: FDA-Public Use
  Company Number: SE-009507513-1805SWE013997

PATIENT
  Age: 71 Year
  Sex: Female

DRUGS (15)
  1. LERGIGAN (PROMETHAZINE HYDROCHLORIDE) [Suspect]
     Active Substance: PROMETHAZINE HYDROCHLORIDE
     Indication: ANXIETY
     Dosage: UNK
     Route: 048
     Dates: start: 20171220, end: 20180124
  2. GABAPENTIN. [Concomitant]
     Active Substance: GABAPENTIN
  3. SOBRIL [Concomitant]
     Active Substance: OXAZEPAM
  4. OMEPRAZOLE. [Concomitant]
     Active Substance: OMEPRAZOLE
  5. TRESIBA [Concomitant]
     Active Substance: INSULIN DEGLUDEC
  6. CRESTOR [Concomitant]
     Active Substance: ROSUVASTATIN CALCIUM
  7. CANDESARTAN CILEXETIL (+) HYDROCHLOROTHIAZIDE [Concomitant]
     Active Substance: CANDESARTAN CILEXETIL\HYDROCHLOROTHIAZIDE
  8. VAGIFEM [Concomitant]
     Active Substance: ESTRADIOL
  9. MIRTAZAPINE. [Suspect]
     Active Substance: MIRTAZAPINE
     Indication: ANXIETY
     Dosage: 45 MG, QD
     Route: 048
     Dates: start: 20171220, end: 20180125
  10. PAROXETINE. [Concomitant]
     Active Substance: PAROXETINE
  11. ATENOLOL. [Concomitant]
     Active Substance: ATENOLOL
  12. PREDNISOLON [Concomitant]
     Active Substance: PREDNISOLONE
  13. LEVAXIN [Concomitant]
     Active Substance: LEVOTHYROXINE SODIUM
  14. CILAXORAL [Concomitant]
     Active Substance: SODIUM PICOSULFATE
  15. ALENDRONAT [Concomitant]
     Active Substance: ALENDRONATE SODIUM

REACTIONS (4)
  - Constipation [Recovered/Resolved]
  - Inappropriate antidiuretic hormone secretion [Recovered/Resolved]
  - Urinary retention [Recovered/Resolved]
  - Hyponatraemia [Recovered/Resolved]

NARRATIVE: CASE EVENT DATE: 201801
